FAERS Safety Report 11666306 (Version 2)
Quarter: 2019Q2

REPORT INFORMATION
  Report Type: Spontaneous
  Country: US (occurrence: US)
  Receive Date: 20151027
  Receipt Date: 20190408
  Transmission Date: 20190711
  Serious: Yes (Death, Other)
  Sender: FDA-Public Use
  Company Number: US-009507513-1510USA013081

PATIENT
  Sex: Female
  Weight: 90.25 kg

DRUGS (4)
  1. JANUMET [Suspect]
     Active Substance: METFORMIN HYDROCHLORIDE\SITAGLIPTIN PHOSPHATE
     Indication: TYPE 2 DIABETES MELLITUS
     Dosage: 50/500 MG, QD
     Route: 048
     Dates: start: 20070427, end: 201203
  2. COUMADIN [Concomitant]
     Active Substance: WARFARIN SODIUM
     Indication: DEEP VEIN THROMBOSIS
     Dosage: UNK
     Route: 065
     Dates: end: 20130602
  3. COUMADIN [Concomitant]
     Active Substance: WARFARIN SODIUM
     Indication: PULMONARY EMBOLISM
  4. JANUVIA [Suspect]
     Active Substance: SITAGLIPTIN PHOSPHATE
     Indication: TYPE 2 DIABETES MELLITUS
     Dosage: 100 MILLIGRAM, QD
     Route: 048
     Dates: start: 20070723, end: 201303

REACTIONS (14)
  - Neuropathy peripheral [Unknown]
  - Pancreatic cyst [Unknown]
  - Pancreatic carcinoma metastatic [Fatal]
  - Ventricular hypertrophy [Unknown]
  - Diabetic retinopathy [Unknown]
  - Lumbar spinal stenosis [Unknown]
  - Back pain [Unknown]
  - Splenic vein thrombosis [Unknown]
  - Macular degeneration [Unknown]
  - Gastric ulcer [Unknown]
  - Metastases to liver [Unknown]
  - Cardiac failure congestive [Unknown]
  - Helicobacter infection [Unknown]
  - Dyspnoea [Unknown]

NARRATIVE: CASE EVENT DATE: 201303
